FAERS Safety Report 24275788 (Version 1)
Quarter: 2024Q3

REPORT INFORMATION
  Report Type: Spontaneous
  Country: FR (occurrence: FR)
  Receive Date: 20240903
  Receipt Date: 20240903
  Transmission Date: 20241017
  Serious: Yes (Other)
  Sender: WOCKHARDT BIO AG
  Company Number: FR-WOCKHARDT BIO AG-2024WBA000018

PATIENT
  Age: 67 Year
  Sex: Male

DRUGS (10)
  1. ACETAMINOPHEN [Suspect]
     Active Substance: ACETAMINOPHEN
     Indication: Analgesic therapy
     Dosage: 1-2 GRAM DAILY
     Route: 065
  2. IMIPENEM [Concomitant]
     Active Substance: IMIPENEM
     Indication: Osteoarthritis
     Dosage: 1 G THREE TIMES DAILY
     Route: 065
  3. FLUCONAZOLE [Concomitant]
     Active Substance: FLUCONAZOLE
     Indication: Osteoarthritis
     Dosage: 400 MG ONCE DAILY
     Route: 065
  4. Emtricitabine, Rilpivirine, Tenofovir alafenamide [Concomitant]
     Indication: HIV infection
     Dosage: 200/25/25 ONCE DAILY
     Route: 065
  5. Arunavir [Concomitant]
     Indication: Product used for unknown indication
     Dosage: 800 MG TWICE DAILY
     Route: 065
  6. RITONAVIR [Concomitant]
     Active Substance: RITONAVIR
     Indication: HIV infection
     Dosage: 100 MG TWICE DAILY
     Route: 065
  7. DOLUTEGRAVIR [Concomitant]
     Active Substance: DOLUTEGRAVIR
     Indication: HIV infection
     Dosage: 50 MG TWICE DAILY
     Route: 065
  8. ASPIRIN [Concomitant]
     Active Substance: ASPIRIN
     Indication: Osteoarthritis
     Dosage: 75 MG DAILY
     Route: 065
  9. MORPHINE SULFATE [Concomitant]
     Active Substance: MORPHINE SULFATE
     Indication: Analgesic therapy
     Dosage: 10 MG DAILY
     Route: 065
  10. NEFOPAM [Concomitant]
     Active Substance: NEFOPAM
     Indication: Analgesic therapy
     Dosage: 20 MG, AS NEEDED.
     Route: 065

REACTIONS (1)
  - Pyroglutamic acidosis [Recovered/Resolved]
